FAERS Safety Report 23147977 (Version 1)
Quarter: 2023Q4

REPORT INFORMATION
  Report Type: Spontaneous
  Country: DE (occurrence: DE)
  Receive Date: 20231106
  Receipt Date: 20231106
  Transmission Date: 20240110
  Serious: Yes (Other)
  Sender: FDA-Public Use
  Company Number: DE-ROCHE-3378795

PATIENT
  Sex: Male

DRUGS (17)
  1. BENDAMUSTINE [Suspect]
     Active Substance: BENDAMUSTINE
     Dosage: UNK FIRST LINE WITH MABTHERA
     Route: 065
     Dates: start: 20100201, end: 20100501
  2. BENDAMUSTINE [Suspect]
     Active Substance: BENDAMUSTINE
     Indication: Richter^s syndrome
     Dosage: UNK SECOND LINE WITH MABTHERA
     Route: 065
     Dates: start: 20151201, end: 20160501
  3. CYCLOPHOSPHAMIDE [Suspect]
     Active Substance: CYCLOPHOSPHAMIDE
     Dosage: UNK FOURTH LINE WITH POLATUZUMAB AND RITUXIMAB
     Route: 065
     Dates: start: 20220801, end: 20221101
  4. CYCLOPHOSPHAMIDE [Suspect]
     Active Substance: CYCLOPHOSPHAMIDE
     Indication: Diffuse large B-cell lymphoma
     Dosage: UNK THIRD LINE, MONOTHERAPY
     Route: 065
     Dates: start: 20190201, end: 20220601
  5. DOXORUBICIN [Suspect]
     Active Substance: DOXORUBICIN
     Dosage: UNK FOURTH LINE WITH POLATUZUMAB AND RITUXIMAB
     Route: 065
     Dates: start: 20220801, end: 20221101
  6. DOXORUBICIN [Suspect]
     Active Substance: DOXORUBICIN
     Indication: Diffuse large B-cell lymphoma
     Dosage: UNK THIRD LINE, MONOTHERAPY
     Route: 065
     Dates: start: 20190201, end: 20220601
  7. IBRUTINIB [Suspect]
     Active Substance: IBRUTINIB
     Indication: Richter^s syndrome
     Dosage: UNK THIRD LINE MONOTHERAPY
     Route: 065
     Dates: start: 20190201, end: 20220601
  8. LENALIDOMIDE [Suspect]
     Active Substance: LENALIDOMIDE
     Dosage: UNK FIFTH LINE WITH TAFASITAMAB
     Route: 065
     Dates: start: 20230401, end: 20230605
  9. LENALIDOMIDE [Suspect]
     Active Substance: LENALIDOMIDE
     Indication: Diffuse large B-cell lymphoma
     Dosage: UNK THIRD LINE, MONOTHERAPY
     Route: 065
     Dates: start: 20190201, end: 20220601
  10. MABTHERA [Suspect]
     Active Substance: RITUXIMAB
     Dosage: UNK FIRST LINE WITH BENDAMUSTINE
     Route: 065
     Dates: start: 20100201, end: 20100501
  11. MABTHERA [Suspect]
     Active Substance: RITUXIMAB
     Indication: Richter^s syndrome
     Dosage: UNK SECOND LINE WITH BENDAMUSTINE
     Route: 065
     Dates: start: 20151201, end: 20160501
  12. PREDNISONE [Suspect]
     Active Substance: PREDNISONE
     Indication: Diffuse large B-cell lymphoma
     Dosage: UNK FOURTH LINE WITH POLATUZUMAB AND RITUXIMAB
     Route: 065
     Dates: start: 20220801, end: 20221101
  13. PREDNISONE [Suspect]
     Active Substance: PREDNISONE
     Dosage: UNK THIRD LINE, MONOTHERAPY
     Route: 065
     Dates: start: 20190201, end: 20220601
  14. POLATUZUMAB VEDOTIN [Suspect]
     Active Substance: POLATUZUMAB VEDOTIN
     Indication: Diffuse large B-cell lymphoma
     Dosage: UNK FOURTH LINE WITH RITUXIMAB AND CHP MINI
     Route: 065
     Dates: start: 20220801, end: 20221101
  15. RITUXIMAB [Suspect]
     Active Substance: RITUXIMAB
     Indication: Diffuse large B-cell lymphoma
     Dosage: UNK FOURTH LINE WITH POLATUZUMAB AND MINI CHP
     Route: 042
     Dates: start: 20220801, end: 20221101
  16. TAFASITAMAB-CXIX [Suspect]
     Active Substance: TAFASITAMAB-CXIX
     Dosage: UNK FIFTH LINE WITH LENALIDOMIDE
     Route: 065
     Dates: start: 20230401, end: 20230605
  17. TAFASITAMAB-CXIX [Suspect]
     Active Substance: TAFASITAMAB-CXIX
     Indication: Diffuse large B-cell lymphoma
     Dosage: UNK THIRD LINE, MONOTHERAPY
     Route: 065
     Dates: start: 20190201, end: 20220601

REACTIONS (1)
  - Lymphoma [Not Recovered/Not Resolved]
